FAERS Safety Report 6959115-6 (Version None)
Quarter: 2010Q3

REPORT INFORMATION
  Report Type: 
  Country: None (occurrence: None)
  Receive Date: 20100825
  Receipt Date: 20100820
  Transmission Date: 20110219
  Serious: Yes (Hospitalization)
  Sender: FDA-Public Use
  Company Number: 2010SP039857

PATIENT
  Age: 51 Year
  Sex: Male
  Weight: 84.6 kg

DRUGS (8)
  1. PEG-INTRON [Suspect]
     Indication: HEPATITIS C
     Dosage: 150 MCG;SC
     Route: 058
     Dates: start: 20100202, end: 20100706
  2. REBETOL [Suspect]
     Indication: HEPATITIS C
     Dosage: 1200 MG;PO
     Route: 048
     Dates: start: 20100202, end: 20100706
  3. REMICADE [Suspect]
     Indication: HEPATITIS C
     Dosage: IV
     Route: 042
     Dates: start: 20100202, end: 20100706
  4. ACETAMINOPHEN [Concomitant]
  5. MELOXICAM [Concomitant]
  6. CITALOPRAM HYDROBROMIDE [Concomitant]
  7. LISINOPRIL [Concomitant]
  8. AMBIEN [Concomitant]

REACTIONS (5)
  - ABDOMINAL PAIN LOWER [None]
  - CHEST PAIN [None]
  - GASTRITIS [None]
  - OROPHARYNGEAL PAIN [None]
  - PYREXIA [None]
